FAERS Safety Report 9181175 (Version 1)
Quarter: 2013Q1

REPORT INFORMATION
  Report Type: Spontaneous
  Country: US (occurrence: US)
  Receive Date: 20130322
  Receipt Date: 20130322
  Transmission Date: 20140127
  Serious: No
  Sender: FDA-Public Use
  Company Number: US-MYLANLABS-2012S1013187

PATIENT
  Sex: Female

DRUGS (4)
  1. EMSAM [Suspect]
     Indication: DEPRESSION
     Dosage: Q24
     Route: 062
  2. EMSAM [Suspect]
     Indication: DEPRESSION
     Dosage: Q24
     Route: 062
  3. SEROQUEL [Suspect]
     Indication: DEPRESSION
     Route: 048
     Dates: start: 2000
  4. SEROQUEL [Suspect]
     Indication: INSOMNIA
     Route: 048
     Dates: start: 2000

REACTIONS (3)
  - Dystonia [Not Recovered/Not Resolved]
  - Neck pain [Not Recovered/Not Resolved]
  - Muscle spasms [None]
